FAERS Safety Report 14559170 (Version 1)
Quarter: 2018Q1

REPORT INFORMATION
  Report Type: Spontaneous
  Country: BE (occurrence: BE)
  Receive Date: 20180221
  Receipt Date: 20180221
  Transmission Date: 20180509
  Serious: Yes (Other)
  Sender: FDA-Public Use
  Company Number: BE-MYLANLABS-2018M1013041

PATIENT
  Age: 83 Year
  Sex: Male

DRUGS (4)
  1. DEPO-MEDROL [Suspect]
     Active Substance: METHYLPREDNISOLONE ACETATE
     Dosage: UNK
     Dates: start: 20171130, end: 20171130
  2. ALPHARIX [Concomitant]
     Indication: IMMUNISATION
     Dosage: UNK
     Dates: start: 20171109, end: 20171109
  3. BISOPROLOL [Suspect]
     Active Substance: BISOPROLOL
     Indication: PRODUCT USED FOR UNKNOWN INDICATION
     Dosage: 2.5 MG, UNK
     Dates: start: 20171207
  4. DEPO-MEDROL [Suspect]
     Active Substance: METHYLPREDNISOLONE ACETATE
     Indication: PERIARTHRITIS
     Dosage: 40 MG, QD
     Dates: start: 20171109, end: 20171109

REACTIONS (11)
  - Back pain [Recovered/Resolved]
  - Chills [Recovered/Resolved]
  - Malaise [Recovered/Resolved]
  - Nausea [Recovered/Resolved]
  - Injection site pain [Recovered/Resolved]
  - Anaphylactic shock [Unknown]
  - Dysphonia [Recovered/Resolved]
  - Sneezing [Unknown]
  - Rhinorrhoea [Unknown]
  - Asthenia [Recovered/Resolved]
  - Defaecation urgency [Recovered/Resolved]

NARRATIVE: CASE EVENT DATE: 20171109
